FAERS Safety Report 14474049 (Version 1)
Quarter: 2018Q1

REPORT INFORMATION
  Report Type: Report from Study
  Country: GB (occurrence: GB)
  Receive Date: 20180201
  Receipt Date: 20180201
  Transmission Date: 20180509
  Serious: Yes (Hospitalization)
  Sender: FDA-Public Use
  Company Number: GB-AMGEN-GBRCT2018011699

PATIENT

DRUGS (3)
  1. ISOSORBIDE MONONITRATE. [Concomitant]
     Active Substance: ISOSORBIDE MONONITRATE
     Indication: ANGINA PECTORIS
     Dosage: 60 MG, QD
     Route: 048
     Dates: start: 20160606, end: 20180106
  2. DENOSUMAB [Suspect]
     Active Substance: DENOSUMAB
     Indication: OSTEOPOROSIS
     Dosage: 60 MG, Q6MO
     Route: 058
     Dates: start: 20170125
  3. FLUORINE F-18 [Concomitant]
     Active Substance: FLUDEOXYGLUCOSE F-18
     Dosage: 125 MBQ, ONCE ONLY
     Route: 042
     Dates: start: 20161201

REACTIONS (1)
  - Dizziness [Recovered/Resolved]

NARRATIVE: CASE EVENT DATE: 20180106
